FAERS Safety Report 5095267-3 (Version None)
Quarter: 2006Q3

REPORT INFORMATION
  Report Type: 
  Country: None (occurrence: None)
  Receive Date: 20060901
  Receipt Date: 20050614
  Transmission Date: 20061208
  Serious: Yes (Hospitalization)
  Sender: FDA-Public Use
  Company Number: US-MERCK-0506USA02431

PATIENT
  Age: 46 Year
  Sex: Female
  Weight: 79 kg

DRUGS (31)
  1. ZOCOR [Suspect]
     Indication: HYPERLIPIDAEMIA
     Route: 048
     Dates: end: 20031017
  2. ZOCOR [Suspect]
     Route: 048
     Dates: start: 20020301
  3. ZOCOR [Suspect]
     Route: 048
     Dates: start: 20020101
  4. CELEXA [Concomitant]
     Route: 048
  5. CELEXA [Concomitant]
     Route: 048
  6. FLOVENT [Concomitant]
     Route: 055
  7. IPRATROPIUM BROMIDE [Concomitant]
     Route: 055
  8. ALBUTEROL [Concomitant]
     Route: 055
  9. ACIPHEX [Concomitant]
     Route: 048
  10. SINGULAIR [Concomitant]
     Route: 048
  11. CARDIZEM CD [Concomitant]
     Route: 048
  12. LASIX [Concomitant]
     Indication: JOINT SWELLING
     Route: 065
  13. TOPROL-XL [Concomitant]
     Route: 048
     Dates: start: 20030219
  14. TOPROL-XL [Concomitant]
     Route: 048
  15. PLAVIX [Concomitant]
     Route: 048
  16. ALLEGRA [Concomitant]
     Route: 048
  17. NITROGLYCERIN [Concomitant]
     Indication: CHEST PAIN
     Route: 060
  18. KLOR-CON [Concomitant]
     Route: 048
  19. IBUPROFEN [Concomitant]
     Route: 065
  20. ZESTORETIC [Concomitant]
     Route: 048
  21. ASPIRIN [Concomitant]
     Route: 048
  22. NAPROXEN [Concomitant]
     Route: 048
  23. TYLENOL ARTHRITIS EXTENDED RELIEF [Concomitant]
     Indication: PAIN
     Route: 048
  24. ACICLOVIR AG [Concomitant]
     Route: 048
  25. ZESTRIL [Concomitant]
     Route: 048
  26. PROTONIX [Concomitant]
     Route: 048
  27. FOLGARD [Concomitant]
     Route: 048
  28. OMEGA-3 MARINE TRIGLYCERIDES [Concomitant]
     Route: 048
  29. CLARITIN-D [Concomitant]
     Route: 048
     Dates: end: 20020626
  30. ZITHROMAX [Concomitant]
     Route: 048
  31. ZITHROMAX [Concomitant]
     Route: 048
     Dates: end: 20020626

REACTIONS (47)
  - ABDOMINAL PAIN [None]
  - ABDOMINAL PAIN LOWER [None]
  - ACUTE SINUSITIS [None]
  - ANGINA PECTORIS [None]
  - ARTHRALGIA [None]
  - ASTHMA [None]
  - BACK PAIN [None]
  - BLOOD GLUCOSE INCREASED [None]
  - BOWEL MOVEMENT IRREGULARITY [None]
  - BRONCHITIS [None]
  - CARPAL TUNNEL SYNDROME [None]
  - CHEST PAIN [None]
  - CORONARY ARTERY DISEASE [None]
  - DEPRESSION [None]
  - EYE DISCHARGE [None]
  - EYE SWELLING [None]
  - FATIGUE [None]
  - GENERALISED OEDEMA [None]
  - HAEMATOMA [None]
  - HEPATITIS [None]
  - HERPES VIRUS INFECTION [None]
  - HYPERHIDROSIS [None]
  - HYPERKERATOSIS [None]
  - HYPOAESTHESIA [None]
  - HYPOTHYROIDISM [None]
  - INTERVERTEBRAL DISC DEGENERATION [None]
  - LOCAL SWELLING [None]
  - MYALGIA [None]
  - OCULAR HYPERAEMIA [None]
  - PARAESTHESIA [None]
  - PHARYNGOLARYNGEAL PAIN [None]
  - PNEUMONIA BACTERIAL [None]
  - RASH [None]
  - RHABDOMYOLYSIS [None]
  - RHINITIS ALLERGIC [None]
  - SINUSITIS [None]
  - SKIN ULCER [None]
  - STOMATITIS [None]
  - SWELLING [None]
  - SWELLING FACE [None]
  - SYSTEMIC LUPUS ERYTHEMATOSUS [None]
  - THIRST [None]
  - UPPER RESPIRATORY TRACT INFECTION [None]
  - VAGINAL DISCHARGE [None]
  - VAGINAL LESION [None]
  - WEIGHT INCREASED [None]
  - WRONG TECHNIQUE IN DRUG USAGE PROCESS [None]
